FAERS Safety Report 25275643 (Version 1)
Quarter: 2025Q2

REPORT INFORMATION
  Report Type: Report from Study
  Country: CA (occurrence: CA)
  Receive Date: 20250506
  Receipt Date: 20250506
  Transmission Date: 20250717
  Serious: Yes (Other)
  Sender: ABBVIE
  Company Number: CA-ABBVIE-6267033

PATIENT
  Sex: Male

DRUGS (1)
  1. SKYRIZI [Suspect]
     Active Substance: RISANKIZUMAB-RZAA
     Indication: Psoriasis
     Dosage: SKYRIZI INJ PFS/PEN
     Route: 058
     Dates: start: 20220630

REACTIONS (2)
  - Cataract [Recovered/Resolved]
  - Inappropriate schedule of product administration [Recovered/Resolved]
